FAERS Safety Report 16072730 (Version 2)
Quarter: 2020Q3

REPORT INFORMATION
  Report Type: Report from Study
  Country: BE (occurrence: BE)
  Receive Date: 20190314
  Receipt Date: 20200713
  Transmission Date: 20201102
  Serious: No
  Sender: FDA-Public Use
  Company Number: BE-PFIZER INC-2019108401

PATIENT
  Age: 80 Year
  Sex: Male
  Weight: 69 kg

DRUGS (4)
  1. 5?FU [FLUOROURACIL] [Suspect]
     Active Substance: FLUOROURACIL
     Indication: COLORECTAL CANCER METASTATIC
     Dosage: 1 UNK, EVERY TWO WEEKS
     Route: 042
     Dates: start: 20170619, end: 20170712
  2. IRINOTECAN HCL [Suspect]
     Active Substance: IRINOTECAN HYDROCHLORIDE
     Indication: COLORECTAL CANCER METASTATIC
     Dosage: 1 UNK, UNK
     Route: 042
     Dates: start: 20170619, end: 20170712
  3. BEVACIZUMAB. [Suspect]
     Active Substance: BEVACIZUMAB
     Indication: COLORECTAL CANCER METASTATIC
     Dosage: 1 UNK, EVERY 3 MONTHS (EVERY TWELVE WEEKS)
     Route: 042
     Dates: start: 20170619, end: 20170710
  4. LEUCOVORIN [FOLINIC ACID] [Suspect]
     Active Substance: LEUCOVORIN
     Indication: COLORECTAL CANCER METASTATIC
     Dosage: 1 UNK, EVERY TWO WEEKS
     Route: 042
     Dates: start: 20170619, end: 20170712

REACTIONS (3)
  - Nausea [Recovering/Resolving]
  - Vomiting [Recovering/Resolving]
  - Asthenia [Not Recovered/Not Resolved]

NARRATIVE: CASE EVENT DATE: 20170621
